FAERS Safety Report 20210463 (Version 1)
Quarter: 2021Q4

REPORT INFORMATION
  Report Type: Spontaneous
  Country: FR (occurrence: FR)
  Receive Date: 20211221
  Receipt Date: 20211221
  Transmission Date: 20220303
  Serious: Yes (Hospitalization)
  Sender: FDA-Public Use
  Company Number: None

PATIENT
  Age: 51 Year
  Sex: Female
  Weight: 75 kg

DRUGS (4)
  1. FLUOROURACIL [Suspect]
     Active Substance: FLUOROURACIL
     Indication: Rectosigmoid cancer metastatic
     Route: 065
     Dates: start: 20210112, end: 20211104
  2. IRINOTECAN [Suspect]
     Active Substance: IRINOTECAN
     Indication: Rectosigmoid cancer metastatic
     Dosage: 290MILLIGRAM
     Route: 065
     Dates: start: 20210112, end: 20210617
  3. OXALIPLATIN [Suspect]
     Active Substance: OXALIPLATIN
     Indication: Rectosigmoid cancer metastatic
     Dosage: OXALIPLATINE ACCORD,UNIT DOSE:150MILLIGRAM
     Route: 042
     Dates: start: 20210112, end: 20210527
  4. AVASTIN [Suspect]
     Active Substance: BEVACIZUMAB
     Indication: Rectosigmoid cancer metastatic
     Dosage: 340MILLIGRAM
     Route: 065
     Dates: start: 20210128, end: 20211104

REACTIONS (1)
  - Nodular regenerative hyperplasia [Recovering/Resolving]

NARRATIVE: CASE EVENT DATE: 20211101
